FAERS Safety Report 6965676-3 (Version None)
Quarter: 2010Q3

REPORT INFORMATION
  Report Type: 
  Country: None (occurrence: None)
  Receive Date: 20100903
  Receipt Date: 20100804
  Transmission Date: 20110219
  Serious: Yes (Hospitalization, Other)
  Sender: FDA-Public Use
  Company Number: PHEH2007US12178

PATIENT
  Sex: Male
  Weight: 78.912 kg

DRUGS (73)
  1. ZOMETA [Suspect]
     Indication: MULTIPLE MYELOMA
     Dosage: UNK, UNK
  2. DECADRON [Suspect]
  3. GLUCOPHAGE [Concomitant]
  4. OXYCONTIN [Concomitant]
     Dosage: 20 MG / EVERY 12 HRS
     Dates: start: 20040409
  5. PERCOCET [Concomitant]
     Dosage: 10/500 / PRN
  6. GLIPIZIDE [Concomitant]
  7. CALCIUM CARBONATE W/VITAMIN D NOS [Concomitant]
  8. VITAMINS [Concomitant]
  9. RADIOTHERAPY [Concomitant]
     Dosage: UNK
     Dates: start: 20040419, end: 20040501
  10. INSULIN HUMAN [Concomitant]
  11. MS CONTIN [Concomitant]
  12. NEURONTIN [Concomitant]
  13. ZESTRIL [Concomitant]
  14. LACTULOSE [Concomitant]
  15. COLACE [Concomitant]
  16. REGLAN [Concomitant]
  17. ASTRAMORPH PF [Concomitant]
  18. DURAMORPH PF [Concomitant]
  19. DURAGESIC-100 [Concomitant]
     Dosage: UNK
     Dates: end: 20040519
  20. DURAGESIC-100 [Concomitant]
     Dosage: 200
     Dates: start: 20040519
  21. PRILOSEC [Concomitant]
  22. TENORMIN [Concomitant]
  23. LIORESAL [Concomitant]
  24. ZANTAC [Concomitant]
  25. ZANAFLEX [Concomitant]
  26. SENNA [Concomitant]
  27. CENTRUM SILVER [Concomitant]
  28. B-COMPLEX ^KRKA^ [Concomitant]
  29. ACTIQ [Concomitant]
  30. LIDODERM [Concomitant]
  31. MIRALAX [Concomitant]
  32. LANTUS [Concomitant]
  33. CHEMOTHERAPEUTICS NOS [Concomitant]
  34. RADIATION THERAPY [Concomitant]
  35. TIZANIDINE HCL [Concomitant]
  36. DULCOLAX [Concomitant]
  37. ATENOLOL [Concomitant]
  38. SENOKOT                                 /UNK/ [Concomitant]
  39. MORPHINE SULFATE [Concomitant]
  40. BACLOFEN [Concomitant]
  41. PROTONIX [Concomitant]
  42. LOVENOX [Concomitant]
  43. GLYBURIDE [Concomitant]
  44. PIOGLITAZONE [Concomitant]
  45. MORPHINE [Concomitant]
  46. THALIDOMIDE [Concomitant]
     Dosage: 200
     Dates: start: 20040617
  47. METFORMIN [Concomitant]
     Dosage: 1500 / BID
  48. ACTOS [Concomitant]
     Dosage: 15 / QD
  49. DEXAMETHASONE [Concomitant]
     Dosage: 4 / Q6
     Dates: end: 20040519
  50. DEXAMETHASONE [Concomitant]
     Dosage: 4 / Q12
     Dates: start: 20040519
  51. ROXANOL [Concomitant]
     Dosage: UNK
  52. LISINOPRIL [Concomitant]
  53. AMBIEN [Concomitant]
  54. PEPCID [Concomitant]
  55. FLEXERIL [Concomitant]
  56. DILAUDID [Concomitant]
  57. RIMANTADINE HYDROCHLORIDE [Concomitant]
  58. NPH INSULIN [Concomitant]
  59. FLUOXETINE [Concomitant]
  60. ENALAPRIL [Concomitant]
  61. ACETAMINOPHEN AND HYDROCODONE BITARTRATE [Concomitant]
  62. FLUTICASONE PROPIONATE [Concomitant]
  63. INSULIN GLARGINE [Concomitant]
  64. SULFAMETHOXAZOLE AND TRIMETHOPRIM [Concomitant]
  65. ACYCLOVIR SODIUM [Concomitant]
  66. GABAPENTIN [Concomitant]
  67. PRAVASTATIN [Concomitant]
  68. CHLORHEXIDINE GLUCONATE [Concomitant]
  69. FENTANYL CITRATE [Concomitant]
  70. AMOXICILLIN [Concomitant]
  71. MIRTAZAPINE [Concomitant]
  72. NAPROXEN [Concomitant]
  73. LOVAZA [Concomitant]

REACTIONS (77)
  - ABDOMINAL PAIN LOWER [None]
  - ANGIOPATHY [None]
  - ANHEDONIA [None]
  - ANXIETY [None]
  - ARTHRALGIA [None]
  - ARTHRITIS [None]
  - ASTHENIA [None]
  - ATELECTASIS [None]
  - BACK PAIN [None]
  - BEDRIDDEN [None]
  - BLOOD CREATININE INCREASED [None]
  - BLOOD UREA INCREASED [None]
  - BONE LESION [None]
  - BONE MARROW TRANSPLANT [None]
  - BONE PAIN [None]
  - BUNDLE BRANCH BLOCK LEFT [None]
  - BUNDLE BRANCH BLOCK RIGHT [None]
  - CARDIAC FAILURE CONGESTIVE [None]
  - CAUDA EQUINA SYNDROME [None]
  - CEREBROVASCULAR ACCIDENT [None]
  - CHRONIC OBSTRUCTIVE PULMONARY DISEASE [None]
  - CONSTIPATION [None]
  - DEFORMITY [None]
  - DEPRESSION [None]
  - DISCOMFORT [None]
  - DRUG DEPENDENCE [None]
  - DYSPNOEA [None]
  - EMOTIONAL DISTRESS [None]
  - FAECAL INCONTINENCE [None]
  - GASTROOESOPHAGEAL REFLUX DISEASE [None]
  - HEMIPARESIS [None]
  - HYPERGLYCAEMIA [None]
  - HYPERHIDROSIS [None]
  - HYPERTENSION [None]
  - HYPOAESTHESIA [None]
  - HYPOPHAGIA [None]
  - INJURY [None]
  - INTERVERTEBRAL DISC DEGENERATION [None]
  - JOINT SWELLING [None]
  - KYPHOSIS [None]
  - LEFT VENTRICULAR HYPERTROPHY [None]
  - LIFE EXPECTANCY SHORTENED [None]
  - LUNG INFILTRATION [None]
  - MEGACOLON [None]
  - MULTIPLE MYELOMA [None]
  - MUSCULAR WEAKNESS [None]
  - MYELITIS TRANSVERSE [None]
  - MYOCARDIAL INFARCTION [None]
  - NEPHROLITHIASIS [None]
  - ORTHOSIS USER [None]
  - OSTEONECROSIS OF JAW [None]
  - OSTEOPENIA [None]
  - PAIN [None]
  - PALPITATIONS [None]
  - PARAPLEGIA [None]
  - PHYSIOTHERAPY [None]
  - PLASMACYTOMA [None]
  - PLEURAL EFFUSION [None]
  - PLEURAL FIBROSIS [None]
  - POLYURIA [None]
  - PROSTATECTOMY [None]
  - PULMONARY OEDEMA [None]
  - RADIOTHERAPY [None]
  - RECTAL HAEMORRHAGE [None]
  - RENAL COLIC [None]
  - RETINOPATHY [None]
  - SCIATICA [None]
  - SINUS TACHYCARDIA [None]
  - SMALL INTESTINAL OBSTRUCTION [None]
  - SPINAL COMPRESSION FRACTURE [None]
  - SPINAL CORD COMPRESSION [None]
  - SPINAL CORPECTOMY [None]
  - SPINAL FUSION SURGERY [None]
  - SUPRAVENTRICULAR EXTRASYSTOLES [None]
  - THORACIC OPERATION [None]
  - URINARY INCONTINENCE [None]
  - WHEELCHAIR USER [None]
